FAERS Safety Report 6559884-3 (Version None)
Quarter: 2010Q1

REPORT INFORMATION
  Report Type: 
  Country: None (occurrence: None)
  Receive Date: 20100129
  Receipt Date: 20090910
  Transmission Date: 20100710
  Serious: No
  Sender: FDA-Public Use
  Company Number: US-ABBOTT-09P-163-0597214-00

PATIENT
  Age: 51 Year
  Sex: Female

DRUGS (1)
  1. HUMIRA [Suspect]
     Indication: RHEUMATOID ARTHRITIS
     Dates: start: 20090906

REACTIONS (6)
  - ABASIA [None]
  - NAUSEA [None]
  - OEDEMA PERIPHERAL [None]
  - SCIATICA [None]
  - URINE OUTPUT DECREASED [None]
  - VOMITING [None]
